FAERS Safety Report 15109554 (Version 1)
Quarter: 2018Q3

REPORT INFORMATION
  Report Type: Spontaneous
  Country: US (occurrence: US)
  Receive Date: 20180705
  Receipt Date: 20180705
  Transmission Date: 20181010
  Serious: Yes (Other)
  Sender: FDA-Public Use
  Company Number: US-TEVA-2018-US-918477

PATIENT
  Sex: Male

DRUGS (2)
  1. ACTIQ [Suspect]
     Active Substance: FENTANYL CITRATE
     Route: 064
  2. FENTORA [Suspect]
     Active Substance: FENTANYL CITRATE
     Route: 064

REACTIONS (8)
  - Withdrawal syndrome [Unknown]
  - Lordosis [Unknown]
  - Crying [Unknown]
  - Foetal exposure during pregnancy [Unknown]
  - Drug dependence [Unknown]
  - Tremor [Unknown]
  - Developmental delay [Unknown]
  - Drug withdrawal syndrome neonatal [Unknown]
